FAERS Safety Report 4760256-2 (Version None)
Quarter: 2005Q3

REPORT INFORMATION
  Report Type: 
  Country: None (occurrence: None)
  Receive Date: 20050902
  Receipt Date: 20050721
  Transmission Date: 20060218
  Serious: Yes (Death, Life-Threatening)
  Sender: FDA-Public Use
  Company Number: JP-ROCHE-411490

PATIENT
  Age: 72 Year
  Sex: Male
  Weight: 68 kg

DRUGS (8)
  1. PEGASYS [Suspect]
     Route: 058
     Dates: start: 20050201, end: 20050620
  2. PEGASYS [Suspect]
     Route: 058
     Dates: start: 20050627, end: 20050711
  3. NORVASC [Concomitant]
     Route: 048
     Dates: start: 20050201
  4. BLOPRESS [Concomitant]
     Route: 048
     Dates: start: 20050201
  5. UNSPECIFIED DRUG [Concomitant]
     Indication: HEPATITIS C
     Dosage: REPORTED AS OTHER BIOLOGICAL PREPARATION.
     Dates: start: 20010615
  6. UNSPECIFIED DRUG [Concomitant]
     Dosage: REPORTED AS OTHER BIOLOGICAL PREPARATION.
     Dates: start: 20020615
  7. ZYRTEC [Concomitant]
     Route: 048
     Dates: start: 20050425
  8. LAFUTIDINE [Concomitant]
     Dosage: DRUG NAME REPORTED AS PROTECADIN.
     Route: 048
     Dates: start: 20050426

REACTIONS (10)
  - ACUTE MYOCARDIAL INFARCTION [None]
  - CARDIO-RESPIRATORY ARREST [None]
  - DIALYSIS [None]
  - DISSEMINATED INTRAVASCULAR COAGULATION [None]
  - HAEMOLYTIC ANAEMIA [None]
  - HAEMOLYTIC URAEMIC SYNDROME [None]
  - NEUTROPENIA [None]
  - RENAL DISORDER [None]
  - RENAL FAILURE ACUTE [None]
  - THROMBOCYTOPENIA [None]
